FAERS Safety Report 20667697 (Version 1)
Quarter: 2022Q2

REPORT INFORMATION
  Report Type: Spontaneous
  Country: US (occurrence: US)
  Receive Date: 20220404
  Receipt Date: 20220404
  Transmission Date: 20220721
  Serious: Yes (Hospitalization, Other)
  Sender: FDA-Public Use
  Company Number: US-AMGEN-USASP2022055156

PATIENT
  Age: 64 Year
  Sex: Male

DRUGS (9)
  1. CARFILZOMIB [Suspect]
     Active Substance: CARFILZOMIB
     Indication: Plasma cell leukaemia
     Dosage: 20 MILLIGRAM/SQ. METER ON D1
     Route: 065
  2. CARFILZOMIB [Suspect]
     Active Substance: CARFILZOMIB
     Dosage: 70 MILLIGRAM/SQ. METER ON D2 AND D8
     Route: 065
  3. FILGRASTIM [Suspect]
     Active Substance: FILGRASTIM
     Indication: Haematopoietic stem cell mobilisation
     Dosage: UNK
     Route: 065
  4. POMALIDOMIDE [Concomitant]
     Active Substance: POMALIDOMIDE
     Indication: Plasma cell leukaemia
     Dosage: 4 MILLIGRAM E DL -5
  5. DEXAMETHASONE [Concomitant]
     Active Substance: DEXAMETHASONE
     Indication: Plasma cell leukaemia
     Dosage: 40 MILLIGRAM D1-5
  6. CISPLATIN [Concomitant]
     Active Substance: CISPLATIN
     Indication: Plasma cell leukaemia
     Dosage: 12.5 MILLIGRAM/SQ. METER DL -4
  7. ADRIAMYCIN [Concomitant]
     Active Substance: DOXORUBICIN HYDROCHLORIDE
     Indication: Plasma cell leukaemia
     Dosage: 10 MILLIGRAM/SQ. METER DL -4
  8. ETOPOSIDE [Concomitant]
     Active Substance: ETOPOSIDE
     Indication: Plasma cell leukaemia
     Dosage: 75 MILLIGRAM/SQ. METER CL DL -4
  9. VENETOCLAX [Concomitant]
     Active Substance: VENETOCLAX
     Indication: Plasma cell leukaemia
     Dosage: 400 MILLIGRAM DL -14

REACTIONS (5)
  - Atrial fibrillation [Unknown]
  - Thrombocytopenia [Unknown]
  - Plasma cell leukaemia [Recovered/Resolved]
  - Therapy partial responder [Unknown]
  - Off label use [Unknown]
